FAERS Safety Report 7063379-0 (Version None)
Quarter: 2010Q4

REPORT INFORMATION
  Report Type: 
  Country: None (occurrence: None)
  Receive Date: 20101026
  Receipt Date: 20100730
  Transmission Date: 20110411
  Serious: Yes (Other)
  Sender: FDA-Public Use
  Company Number: US-PFIZER INC-2010096402

PATIENT
  Sex: Female
  Weight: 54.422 kg

DRUGS (1)
  1. LIPITOR [Suspect]
     Indication: VASCULAR GRAFT
     Dosage: UNK
     Route: 048
     Dates: start: 20050101

REACTIONS (2)
  - ALOPECIA [None]
  - HEPATIC ENZYME INCREASED [None]
